FAERS Safety Report 5328779-5 (Version None)
Quarter: 2007Q2

REPORT INFORMATION
  Report Type: 
  Country: None (occurrence: None)
  Receive Date: 20070518
  Receipt Date: 20070514
  Transmission Date: 20071010
  Serious: Yes (Hospitalization)
  Sender: FDA-Public Use
  Company Number: PHNU2007DE00645

PATIENT
  Age: 79 Year
  Sex: Male
  Weight: 75 kg

DRUGS (5)
  1. AREDIA [Suspect]
     Indication: OSTEOPOROSIS
     Dosage: 30 MG EVERY 4 MONTHS
     Route: 042
     Dates: start: 20050530
  2. AREDIA [Suspect]
     Dosage: 30 MG/D
     Dates: start: 20050919
  3. AREDIA [Suspect]
     Dosage: 30 MG/D
     Dates: start: 20060116
  4. AREDIA [Suspect]
     Dosage: 30 MG/D
     Dates: start: 20060512
  5. AREDIA [Suspect]
     Dosage: 30 MG/D
     Dates: start: 20070119

REACTIONS (3)
  - DYSPNOEA [None]
  - HEREDITARY ANGIOEDEMA [None]
  - PHARYNGEAL OEDEMA [None]
